FAERS Safety Report 8334999-8 (Version None)
Quarter: 2012Q2

REPORT INFORMATION
  Report Type: 
  Country: None (occurrence: None)
  Receive Date: 20120503
  Receipt Date: 20120423
  Transmission Date: 20120825
  Serious: Yes (Hospitalization)
  Sender: FDA-Public Use
  Company Number: DE-TEVA-336024GER

PATIENT
  Age: 55 Year
  Sex: Female
  Weight: 69 kg

DRUGS (3)
  1. CLOZAPINE [Concomitant]
     Dosage: 50 MILLIGRAM;
     Route: 048
  2. FLUVOXAMINE MALEATE [Suspect]
     Dosage: 150 MILLIGRAM;
     Route: 048
  3. VALPROATE SODIUM [Concomitant]
     Dosage: 600 MILLIGRAM;
     Route: 048

REACTIONS (2)
  - HYPOKALAEMIA [None]
  - ELECTROCARDIOGRAM ABNORMAL [None]
